FAERS Safety Report 23810053 (Version 1)
Quarter: 2024Q2

REPORT INFORMATION
  Report Type: Spontaneous
  Country: US (occurrence: None)
  Receive Date: 20240501
  Receipt Date: 20240501
  Transmission Date: 20240716
  Serious: Yes (Other)
  Sender: FDA-Public Use
  Company Number: None

PATIENT
  Age: 81 Year
  Sex: Female

DRUGS (2)
  1. XDEMVY [Suspect]
     Active Substance: LOTILANER
     Indication: Acariasis
     Dosage: OTHER QUANTITY : INSTILL 1 DROP EAC;?FREQUENCY : TWICE A DAY;?
     Route: 047
     Dates: start: 20240418
  2. XDEMVY [Suspect]
     Active Substance: LOTILANER
     Indication: Blepharitis

REACTIONS (2)
  - Pain in jaw [None]
  - Endodontic procedure [None]

NARRATIVE: CASE EVENT DATE: 20240501
